FAERS Safety Report 9052648 (Version 1)
Quarter: 2013Q1

REPORT INFORMATION
  Report Type: Spontaneous
  Country: FR (occurrence: FR)
  Receive Date: 20130207
  Receipt Date: 20130207
  Transmission Date: 20140127
  Serious: Yes (Hospitalization, Other)
  Sender: FDA-Public Use
  Company Number: FR-PFIZER INC-2013041526

PATIENT
  Age: 46 Year
  Sex: Male

DRUGS (5)
  1. SALAZOPYRINE [Suspect]
     Indication: PSORIATIC ARTHROPATHY
     Dosage: UNK
     Route: 048
     Dates: start: 20121128, end: 20121210
  2. DAFALGAN CODEINE [Suspect]
     Indication: MALAISE
     Dosage: UNK
     Route: 048
     Dates: start: 20121210, end: 20121215
  3. DAFALGAN CODEINE [Suspect]
     Indication: MYALGIA
  4. THIOCOLCHICOSIDE [Suspect]
     Indication: MALAISE
     Dosage: UNK
     Route: 048
     Dates: start: 20121210, end: 20121215
  5. THIOCOLCHICOSIDE [Suspect]
     Indication: MYALGIA

REACTIONS (4)
  - Stevens-Johnson syndrome [Recovering/Resolving]
  - Malaise [Recovering/Resolving]
  - Myalgia [Recovering/Resolving]
  - Lymphadenopathy [Recovering/Resolving]
